FAERS Safety Report 10505762 (Version 1)
Quarter: 2014Q4

REPORT INFORMATION
  Report Type: Spontaneous
  Country: DZ (occurrence: DZ)
  Receive Date: 20141008
  Receipt Date: 20141008
  Transmission Date: 20150528
  Serious: Yes (Other)
  Sender: FDA-Public Use
  Company Number: PHHY2014DZ129238

PATIENT
  Sex: Male

DRUGS (3)
  1. NOVOSEVEN [Concomitant]
     Active Substance: COAGULATION FACTOR VIIA RECOMBINANT HUMAN
     Indication: FACTOR VII DEFICIENCY
     Route: 065
  2. FACTOR VII [Concomitant]
     Indication: PROPHYLAXIS
     Route: 065
  3. VALPROIC ACID. [Suspect]
     Active Substance: VALPROIC ACID
     Indication: SEIZURE
     Dosage: 20 MG/KG, PER DAY
     Route: 065

REACTIONS (2)
  - Peritoneal haemorrhage [Recovered/Resolved]
  - Seizure [Recovered/Resolved]
